FAERS Safety Report 23603298 (Version 1)
Quarter: 2024Q1

REPORT INFORMATION
  Report Type: Spontaneous
  Country: US (occurrence: US)
  Receive Date: 20240307
  Receipt Date: 20240307
  Transmission Date: 20240409
  Serious: Yes (Other)
  Sender: FDA-Public Use
  Company Number: US-JNJFOC-20240302766

PATIENT
  Age: 81 Year

DRUGS (1)
  1. XARELTO [Suspect]
     Active Substance: RIVAROXABAN
     Indication: Thrombophlebitis
     Route: 048
     Dates: start: 202402

REACTIONS (5)
  - Deep vein thrombosis [Unknown]
  - Dizziness [Unknown]
  - Abdominal pain upper [Recovered/Resolved]
  - Cyanosis [Unknown]
  - Off label use [Unknown]

NARRATIVE: CASE EVENT DATE: 20240228
